FAERS Safety Report 23965950 (Version 1)
Quarter: 2024Q2

REPORT INFORMATION
  Report Type: Spontaneous
  Country: US (occurrence: US)
  Receive Date: 20240612
  Receipt Date: 20240612
  Transmission Date: 20240715
  Serious: Yes (Other)
  Sender: FDA-Public Use
  Company Number: US-AMGEN-USASP2024112678

PATIENT

DRUGS (6)
  1. TRASTUZUMAB [Suspect]
     Active Substance: TRASTUZUMAB
     Indication: Hormone receptor positive breast cancer
     Dosage: UNK
     Route: 065
  2. TRASTUZUMAB [Suspect]
     Active Substance: TRASTUZUMAB
     Indication: HER2 positive breast cancer
  3. PERTUZUMAB [Suspect]
     Active Substance: PERTUZUMAB
     Indication: Hormone receptor positive breast cancer
     Route: 065
  4. PERTUZUMAB [Suspect]
     Active Substance: PERTUZUMAB
     Indication: HER2 positive breast cancer
  5. NERATINIB [Suspect]
     Active Substance: NERATINIB
     Indication: Hormone receptor positive breast cancer
     Route: 065
  6. NERATINIB [Suspect]
     Active Substance: NERATINIB
     Indication: HER2 positive breast cancer

REACTIONS (7)
  - HER2 positive breast cancer [Unknown]
  - Hormone receptor positive breast cancer [Unknown]
  - Breast cancer metastatic [Unknown]
  - Metastases to central nervous system [Unknown]
  - Off label use [Unknown]
  - Diarrhoea [Unknown]
  - Rash [Unknown]
